FAERS Safety Report 7088817-9 (Version None)
Quarter: 2010Q4

REPORT INFORMATION
  Report Type: 
  Country: None (occurrence: None)
  Receive Date: 20101108
  Receipt Date: 20101026
  Transmission Date: 20110411
  Serious: Yes (Hospitalization, Other)
  Sender: FDA-Public Use
  Company Number: PHHY2010JP59969

PATIENT
  Age: 9 Year
  Sex: Female

DRUGS (2)
  1. TEGRETOL [Suspect]
     Indication: TEMPORAL LOBE EPILEPSY
     Dosage: 300 MG, QD
     Route: 048
     Dates: start: 20100708, end: 20100901
  2. CLARITHROMYCIN [Concomitant]
     Dosage: UNK
     Route: 048
     Dates: start: 20100823, end: 20101028

REACTIONS (19)
  - ALANINE AMINOTRANSFERASE INCREASED [None]
  - ASPARTATE AMINOTRANSFERASE INCREASED [None]
  - BLOOD IMMUNOGLOBULIN A DECREASED [None]
  - BLOOD IMMUNOGLOBULIN G DECREASED [None]
  - BLOOD IMMUNOGLOBULIN M DECREASED [None]
  - DECREASED APPETITE [None]
  - DRUG RASH WITH EOSINOPHILIA AND SYSTEMIC SYMPTOMS [None]
  - FACE OEDEMA [None]
  - HYPOGAMMAGLOBULINAEMIA [None]
  - LARYNGEAL ERYTHEMA [None]
  - LYMPHADENOPATHY [None]
  - NAUSEA [None]
  - OEDEMA PERIPHERAL [None]
  - PIGMENTATION DISORDER [None]
  - PLATELET COUNT DECREASED [None]
  - PRURITUS [None]
  - PYREXIA [None]
  - RASH [None]
  - SPLENOMEGALY [None]
